FAERS Safety Report 25538382 (Version 2)
Quarter: 2025Q3

REPORT INFORMATION
  Report Type: Spontaneous
  Country: EU (occurrence: EU)
  Receive Date: 20250710
  Receipt Date: 20250715
  Transmission Date: 20251021
  Serious: Yes (Other)
  Sender: BRISTOL-MYERS SQUIBB COMPANY
  Company Number: EU-BRISTOL-MYERS SQUIBB COMPANY-2025-094683

PATIENT
  Age: 37 Year
  Sex: Female

DRUGS (13)
  1. THALIDOMIDE [Suspect]
     Active Substance: THALIDOMIDE
     Indication: Medulloblastoma recurrent
     Route: 048
  2. ETOPOSIDE [Suspect]
     Active Substance: ETOPOSIDE
     Indication: Medulloblastoma recurrent
  3. ETOPOSIDE [Suspect]
     Active Substance: ETOPOSIDE
  4. ETOPOSIDE [Suspect]
     Active Substance: ETOPOSIDE
     Dosage: 1 MILLIGRAM, QD (FOR 3 DAYS OF EACH 28-DAY CYCLE), INTRAVENTRICULAR
  5. ETOPOSIDE [Suspect]
     Active Substance: ETOPOSIDE
     Route: 048
  6. FENOFIBRATE [Suspect]
     Active Substance: FENOFIBRATE
     Indication: Medulloblastoma recurrent
     Route: 048
  7. CELECOXIB [Suspect]
     Active Substance: CELECOXIB
     Indication: Medulloblastoma recurrent
     Dosage: 400 MILLIGRAM X 2, BID
     Route: 048
  8. CYCLOPHOSPHAMIDE [Suspect]
     Active Substance: CYCLOPHOSPHAMIDE
     Indication: Medulloblastoma recurrent
     Route: 048
  9. BEVACIZUMAB [Suspect]
     Active Substance: BEVACIZUMAB
     Indication: Medulloblastoma recurrent
     Dosage: 10 MILLIGRAM/KILOGRAM, Q2WK
     Route: 042
  10. CYTARABINE [Suspect]
     Active Substance: CYTARABINE
     Indication: Medulloblastoma
  11. CARBOPLATIN [Concomitant]
     Active Substance: CARBOPLATIN
     Indication: Medulloblastoma
  12. CARBOPLATIN [Concomitant]
     Active Substance: CARBOPLATIN
  13. SULFAMETHOXAZOLE\TRIMETHOPRIM [Concomitant]
     Active Substance: SULFAMETHOXAZOLE\TRIMETHOPRIM
     Indication: Prophylaxis

REACTIONS (6)
  - Neutropenia [Unknown]
  - Lymphopenia [Unknown]
  - Neurotoxicity [Unknown]
  - Oesophageal candidiasis [Unknown]
  - Arachnoiditis [Unknown]
  - Off label use [Unknown]
